FAERS Safety Report 23686045 (Version 1)
Quarter: 2024Q1

REPORT INFORMATION
  Report Type: Spontaneous
  Country: FR (occurrence: FR)
  Receive Date: 20240329
  Receipt Date: 20240329
  Transmission Date: 20240409
  Serious: Yes (Hospitalization)
  Sender: FDA-Public Use
  Company Number: FR-SUN PHARMACEUTICAL INDUSTRIES LTD-2024RR-439049

PATIENT
  Age: 57 Year
  Sex: Female
  Weight: 70.4 kg

DRUGS (5)
  1. PANTOPRAZOLE [Suspect]
     Active Substance: PANTOPRAZOLE
     Indication: Endoscopy upper gastrointestinal tract
     Dosage: 192 MILLIGRAM, IN TOTAL, SAP 8 MG/H
     Route: 040
     Dates: start: 20231213, end: 20231213
  2. METOCLOPRAMIDE [Suspect]
     Active Substance: METOCLOPRAMIDE
     Indication: Nausea
     Dosage: 10 MILLIGRAM, IN TOTAL
     Route: 040
     Dates: start: 20231218, end: 20231218
  3. IOBITRIDOL [Suspect]
     Active Substance: IOBITRIDOL
     Indication: Computerised tomogram abdomen
     Dosage: 90 MILLILITER, IN TOTAL
     Route: 040
     Dates: start: 20231214, end: 20231214
  4. DOLIPRANE [Suspect]
     Active Substance: ACETAMINOPHEN
     Indication: Pain
     Dosage: 1000 MILLIGRAM, IN TOTAL
     Route: 048
     Dates: start: 20231216, end: 20231216
  5. ERYTHROMYCIN [Suspect]
     Active Substance: ERYTHROMYCIN
     Indication: Endoscopy upper gastrointestinal tract
     Dosage: 200 MILLIGRAM, IN TOTAL
     Route: 040
     Dates: start: 20231213, end: 20231213

REACTIONS (1)
  - Acute generalised exanthematous pustulosis [Not Recovered/Not Resolved]

NARRATIVE: CASE EVENT DATE: 20231219
